FAERS Safety Report 17111906 (Version 1)
Quarter: 2019Q4

REPORT INFORMATION
  Report Type: Spontaneous
  Country: US (occurrence: US)
  Receive Date: 20191111
  Receipt Date: 20191111
  Transmission Date: 20200122
  Serious: No
  Sender: FDA-Public Use
  Company Number: None

PATIENT
  Age: 56 Year
  Sex: Female

DRUGS (1)
  1. CAPECITABINE 500MG NOVADOZ [Suspect]
     Active Substance: CAPECITABINE
     Indication: BILE DUCT CANCER
     Route: 048
     Dates: start: 20190913

REACTIONS (7)
  - Diarrhoea [None]
  - Pyrexia [None]
  - Pain [None]
  - Vomiting [None]
  - Fatigue [None]
  - Palmar-plantar erythrodysaesthesia syndrome [None]
  - Nausea [None]

NARRATIVE: CASE EVENT DATE: 20191004
